FAERS Safety Report 10062653 (Version 1)
Quarter: 2014Q2

REPORT INFORMATION
  Report Type: Spontaneous
  Country: US (occurrence: US)
  Receive Date: 20140407
  Receipt Date: 20140407
  Transmission Date: 20141212
  Serious: Yes (Life-Threatening)
  Sender: FDA-Public Use
  Company Number: US-PERRIGO-14US003520

PATIENT
  Age: 9 Year
  Sex: Female

DRUGS (1)
  1. CLINDAMYCIN PALMITATE HYDROCHLORIDE RX 15 MG/ML 3G2 [Suspect]
     Indication: PHARYNGITIS STREPTOCOCCAL
     Dosage: UNK, UNK
     Route: 065

REACTIONS (2)
  - Clostridium difficile colitis [Recovering/Resolving]
  - Gas gangrene [Recovering/Resolving]
